FAERS Safety Report 21692704 (Version 1)
Quarter: 2022Q4

REPORT INFORMATION
  Report Type: Spontaneous
  Country: GB (occurrence: GB)
  Receive Date: 20221207
  Receipt Date: 20221207
  Transmission Date: 20230113
  Serious: No
  Sender: FDA-Public Use
  Company Number: None

PATIENT
  Age: 42 Year
  Sex: Male
  Weight: 77.8 kg

DRUGS (15)
  1. TOLVAPTAN [Suspect]
     Active Substance: TOLVAPTAN
     Indication: Congenital cystic kidney disease
     Dosage: 45 MILLIGRAM ,TABLET (UNCOATED,ORAL)
     Route: 048
     Dates: start: 20180323
  2. TOLVAPTAN [Suspect]
     Active Substance: TOLVAPTAN
     Dosage: 15 MILLIGRAM, TABLET (UNCOATED, ORAL)
     Route: 048
     Dates: start: 20180323
  3. TOLVAPTAN [Suspect]
     Active Substance: TOLVAPTAN
     Dosage: 30 MILLIGRAM, TABLET (UNCOATED, ORAL)
     Route: 048
     Dates: start: 20180622
  4. TOLVAPTAN [Suspect]
     Active Substance: TOLVAPTAN
     Dosage: 60 MILLIGRAM, TABLET (UNCOATED,ORAL)
     Route: 048
     Dates: start: 20180622
  5. TOLVAPTAN [Suspect]
     Active Substance: TOLVAPTAN
     Dosage: 30 MILLIGRAM, TABLET (UNCOATED, ORAL)
     Route: 048
     Dates: start: 20180727
  6. TOLVAPTAN [Suspect]
     Active Substance: TOLVAPTAN
     Dosage: 90 MILLIGRAM, TABLET (UNCOATED, ORAL)
     Route: 048
     Dates: start: 20191004
  7. TOLVAPTAN [Suspect]
     Active Substance: TOLVAPTAN
     Dosage: UNK, TABLET (UNCOATED, ORAL)
     Route: 048
     Dates: start: 20190208
  8. TOLVAPTAN [Suspect]
     Active Substance: TOLVAPTAN
     Dosage: 15 MILLIGRAM, TABLET (UNCOATED, ORAL)
     Route: 048
     Dates: start: 20190726
  9. TOLVAPTAN [Suspect]
     Active Substance: TOLVAPTAN
     Dosage: 45 MILLIGRAM, TABLET (UNCOATED, ORAL)
     Route: 048
     Dates: start: 20190726
  10. TOLVAPTAN [Suspect]
     Active Substance: TOLVAPTAN
     Dosage: 30 MILLIGRAM, TABLET (UNCOATED, ORAL)
     Route: 048
     Dates: start: 20191004
  11. TOLVAPTAN [Suspect]
     Active Substance: TOLVAPTAN
     Dosage: 90 MILLIGRAM, TABLET (UNCOATED, ORAL)
     Route: 048
     Dates: start: 20180727
  12. TOLVAPTAN [Suspect]
     Active Substance: TOLVAPTAN
     Dosage: UNK, TABLET (UNCOATED, ORAL)
     Route: 048
     Dates: start: 20191101
  13. ENALAPRIL [Concomitant]
     Active Substance: ENALAPRIL
     Indication: Product used for unknown indication
     Dosage: 20 MILLIGRAM, QD
     Route: 065
     Dates: start: 20070701
  14. METFORMIN [Concomitant]
     Active Substance: METFORMIN HYDROCHLORIDE
     Indication: Product used for unknown indication
     Dosage: 500 MILLIGRAM, BID
     Route: 065
     Dates: start: 20140729
  15. OMEPRAZOLE [Concomitant]
     Active Substance: OMEPRAZOLE
     Indication: Dyspepsia
     Dosage: 20 MILLIGRAM
     Route: 065
     Dates: start: 20130612

REACTIONS (5)
  - Nocturia [Recovered/Resolved]
  - Polyuria [Recovered/Resolved]
  - Urinary hesitation [Recovered/Resolved]
  - Nocturia [Recovered/Resolved]
  - Polyuria [Recovered/Resolved]

NARRATIVE: CASE EVENT DATE: 20180323
